FAERS Safety Report 17009745 (Version 1)
Quarter: 2019Q4

REPORT INFORMATION
  Report Type: Spontaneous
  Country: US (occurrence: US)
  Receive Date: 20191108
  Receipt Date: 20191108
  Transmission Date: 20200122
  Serious: Yes (Death)
  Sender: FDA-Public Use
  Company Number: US-MALLINCKRODT-T201907415

PATIENT
  Sex: Female
  Weight: 8 kg

DRUGS (5)
  1. H.P. ACTHAR [Suspect]
     Active Substance: CORTICOTROPIN
     Indication: INFANTILE SPASMS
     Dosage: 0.38 ML (30.4 UNITS) TWICE DAILY
     Route: 030
  2. H.P. ACTHAR [Suspect]
     Active Substance: CORTICOTROPIN
     Dosage: 0.15 ML (12 UNITS) ONCE DAILY
     Route: 030
  3. H.P. ACTHAR [Suspect]
     Active Substance: CORTICOTROPIN
     Dosage: 0.08 ML (6.4 UNITS) ONCE DAILY
     Route: 030
  4. H.P. ACTHAR [Suspect]
     Active Substance: CORTICOTROPIN
     Dosage: 0.05 ML (4 UNITS) ONCE DAILY
     Route: 030
  5. H.P. ACTHAR [Suspect]
     Active Substance: CORTICOTROPIN
     Dosage: 0.05 ML (4 UNITS) EVERY OTHER DAY
     Route: 030

REACTIONS (1)
  - Death [Fatal]
